FAERS Safety Report 9335381 (Version 1)
Quarter: 2013Q2

REPORT INFORMATION
  Report Type: Spontaneous
  Country: GB (occurrence: GB)
  Receive Date: 20130606
  Receipt Date: 20130606
  Transmission Date: 20140414
  Serious: Yes (Hospitalization, Other)
  Sender: FDA-Public Use
  Company Number: GB-009507513-1306GBR000917

PATIENT
  Sex: 0

DRUGS (1)
  1. JANUVIA TABLETS 50MG [Suspect]
     Dosage: 50 MG, QD
     Route: 048

REACTIONS (4)
  - Dysphagia [Unknown]
  - Cardiac operation [Unknown]
  - Gastrointestinal tube insertion [Unknown]
  - Drug dose omission [Unknown]
